FAERS Safety Report 9913717 (Version 1)
Quarter: 2014Q1

REPORT INFORMATION
  Report Type: Spontaneous
  Country: US (occurrence: US)
  Receive Date: 20140220
  Receipt Date: 20140220
  Transmission Date: 20141002
  Serious: Yes (Other)
  Sender: FDA-Public Use
  Company Number: US-ASTRAZENECA-2014SE10168

PATIENT
  Sex: Female

DRUGS (3)
  1. RHINOCORT AQUA [Suspect]
     Route: 045
  2. OTHER NASAL SPRAYS (UNSPECIFIED) [Concomitant]
  3. PROAIR [Concomitant]
     Indication: ASTHMA

REACTIONS (2)
  - Breast cancer [Unknown]
  - Intentional drug misuse [Unknown]
